FAERS Safety Report 6590230-5 (Version None)
Quarter: 2010Q1

REPORT INFORMATION
  Report Type: 
  Country: None (occurrence: None)
  Receive Date: 20100219
  Receipt Date: 20100208
  Transmission Date: 20100710
  Serious: Yes (Other)
  Sender: FDA-Public Use
  Company Number: FR-KINGPHARMUSA00001-K201000139

PATIENT
  Age: 34 Year
  Sex: Male

DRUGS (5)
  1. ALTACE [Suspect]
     Indication: HYPERTENSION
     Dosage: UNK
     Route: 048
  2. NEORAL [Suspect]
     Indication: NEPHRITIC SYNDROME
     Dosage: UNK
     Route: 048
     Dates: start: 20080601, end: 20081201
  3. TAHOR [Suspect]
     Dosage: UNK
     Route: 048
  4. MOPRAL [Suspect]
     Dosage: UNK
  5. SPECIAFOLDINE [Concomitant]

REACTIONS (1)
  - HYPOSPERMIA [None]
